FAERS Safety Report 23649012 (Version 1)
Quarter: 2024Q1

REPORT INFORMATION
  Report Type: Spontaneous
  Country: US (occurrence: US)
  Receive Date: 20240319
  Receipt Date: 20240319
  Transmission Date: 20240409
  Serious: Yes (Other)
  Sender: FDA-Public Use
  Company Number: US-VIIV HEALTHCARE LIMITED-US2024030463

PATIENT
  Age: 58 Year
  Sex: Male

DRUGS (24)
  1. RILPIVIRINE [Suspect]
     Active Substance: RILPIVIRINE
     Indication: HIV infection
     Dosage: UNK (600MG/3ML-900MG/3ML)
     Route: 030
  2. CABOTEGRAVIR [Suspect]
     Active Substance: CABOTEGRAVIR
     Indication: HIV infection
     Dosage: UNK (600MG/3ML-900MG/3ML)
     Route: 065
  3. SHINGRIX [Suspect]
     Active Substance: RECOMBINANT VARICELLA ZOSTER VIRUS (VZV) GLYCOPROTEIN E
     Indication: Prophylaxis
     Dates: start: 20220824
  4. INFLUENZA VIRUS VACCINE [Suspect]
     Active Substance: INFLUENZA VIRUS VACCINE
     Indication: Prophylaxis
     Dosage: UNK (PRESERVATIVE FREE 20-OCT-2023, 05-DEC-2022)
     Dates: start: 20220112
  5. JYNNEOS [Suspect]
     Active Substance: VACCINIA VIRUS MODIFIED STRAIN ANKARA-BAVARIAN NORDIC NON-REPLICATING ANTIGEN
     Indication: Prophylaxis
     Dosage: UNK (SMALLPOX MONKEYPOX, 08-SEP-2022)
     Dates: start: 20220805
  6. DAVESOMERAN\ELASOMERAN [Suspect]
     Active Substance: DAVESOMERAN\ELASOMERAN
     Indication: Prophylaxis
     Dosage: UNK (BLUE CAP,6M+, RED CAP BLUE LABEL 12+ 11-MAY-2022, 23-NOV-2021, 30-MAR-2021, 01-SEP-2023)
     Dates: start: 20221205
  7. MODERNA COVID-19 VACCINE [Suspect]
     Active Substance: ELASOMERAN
     Indication: Prophylaxis
     Dosage: UNK
     Dates: start: 20210330
  8. LIPITOR [Suspect]
     Active Substance: ATORVASTATIN CALCIUM
     Indication: Product used for unknown indication
     Dosage: UNK
  9. ZYRTEC [Suspect]
     Active Substance: CETIRIZINE HYDROCHLORIDE
     Indication: Product used for unknown indication
     Dosage: UNK
  10. COLACE [Suspect]
     Active Substance: DOCUSATE SODIUM
     Indication: Product used for unknown indication
     Dosage: UNK
  11. VITAMIN D2 [Suspect]
     Active Substance: ERGOCALCIFEROL
     Indication: Product used for unknown indication
     Dosage: UNK  (50,000 UNIT)
  12. BASAGLAR KWIKPEN [Suspect]
     Active Substance: INSULIN GLARGINE
     Indication: Product used for unknown indication
     Dosage: UNK (100UNIT/ML (3 ML) PEN,U-100 INSULIN)
  13. HUMALOG [Suspect]
     Active Substance: INSULIN LISPRO
     Indication: Product used for unknown indication
     Dosage: UNK (100UNIT/ML, 3 ML PEN)
  14. HYZAAR [Suspect]
     Active Substance: HYDROCHLOROTHIAZIDE\LOSARTAN POTASSIUM
     Indication: Product used for unknown indication
     Dosage: UNK (100-25 MG)
  15. VIAGRA [Suspect]
     Active Substance: SILDENAFIL CITRATE
     Indication: Product used for unknown indication
     Dosage: UNK
  16. SYNALAR [Suspect]
     Active Substance: FLUOCINOLONE ACETONIDE
     Indication: Product used for unknown indication
     Dosage: UNK,  (EXTERNAL SOLUTION)
  17. NEURONTIN [Suspect]
     Active Substance: GABAPENTIN
     Indication: Product used for unknown indication
     Dosage: UNK
  18. MYCOLOG-II [Suspect]
     Active Substance: NYSTATIN\TRIAMCINOLONE ACETONIDE
     Indication: Product used for unknown indication
     Dosage: UNK (100000-0.1 UNIT/GRAM-%)
  19. GLYCOLAX [Suspect]
     Active Substance: POLYETHYLENE GLYCOL 3350
     Indication: Product used for unknown indication
     Dosage: UNK (17GRAM/DOSE POWDER)
  20. XALATAN [Suspect]
     Active Substance: LATANOPROST
     Indication: Product used for unknown indication
     Dosage: UNK, (OPHTHALMIC SOLUTIONS)
  21. DIPHTHERIA AND TETANUS TOXOIDS AND ACELLULAR PERTUSSIS VACCINE ADSORBE [Suspect]
     Active Substance: DIPHTHERIA AND TETANUS TOXOIDS AND ACELLULAR PERTUSSIS VACCINE ADSORBED
     Indication: Prophylaxis
     Dates: start: 20220322
  22. DICLOFENAC [Suspect]
     Active Substance: DICLOFENAC
     Indication: Product used for unknown indication
     Dosage: UNK
  23. DOXYLAMINE SUCCINATE [Suspect]
     Active Substance: DOXYLAMINE SUCCINATE
     Indication: Product used for unknown indication
     Dosage: UNK
  24. FLUCELVAX NOS [Concomitant]
     Active Substance: INFLUENZA A VIRUS A/BRISBANE/10/2010 (H1N1) ANTIGEN (MDCK CELL DERIVED, PROPIOLACTONE INACTIVATED)\I
     Indication: Prophylaxis
     Dosage: UNK (CELL BASED, PRESERVATIVE FREE, 6M+)
     Dates: start: 20201009

REACTIONS (17)
  - Erectile dysfunction [Unknown]
  - Hepatitis A [Unknown]
  - Snoring [Unknown]
  - Constipation [Unknown]
  - Back pain [Unknown]
  - Paraesthesia [Unknown]
  - Herpes simplex [Unknown]
  - Rhinitis allergic [Unknown]
  - Glucose-6-phosphate dehydrogenase deficiency [Unknown]
  - Microalbuminuria [Unknown]
  - Vitamin D deficiency [Unknown]
  - Trigger finger [Unknown]
  - Visual impairment [Unknown]
  - Hyperglycaemia [Unknown]
  - Insomnia [Unknown]
  - Fatigue [Unknown]
  - Somnolence [Unknown]
